FAERS Safety Report 7353040-7 (Version None)
Quarter: 2011Q1

REPORT INFORMATION
  Report Type: 
  Country: None (occurrence: None)
  Receive Date: 20110315
  Receipt Date: 20110303
  Transmission Date: 20110831
  Serious: Yes (Hospitalization)
  Sender: FDA-Public Use
  Company Number: B0577137A

PATIENT
  Sex: Female
  Weight: 56 kg

DRUGS (1)
  1. VENTOLIN [Suspect]
     Route: 061
     Dates: start: 20090323, end: 20090323

REACTIONS (5)
  - MEDICATION ERROR [None]
  - INCORRECT ROUTE OF DRUG ADMINISTRATION [None]
  - INTENTIONAL DRUG MISUSE [None]
  - CHEMICAL BURN OF SKIN [None]
  - TOXICITY TO VARIOUS AGENTS [None]
